FAERS Safety Report 4283297-0 (Version None)
Quarter: 2004Q1

REPORT INFORMATION
  Report Type: 
  Country: None (occurrence: None)
  Receive Date: 20040129
  Receipt Date: 20040116
  Transmission Date: 20041129
  Serious: Yes (Death, Hospitalization)
  Sender: FDA-Public Use
  Company Number: 2004003271

PATIENT
  Age: 65 Year
  Sex: Male
  Weight: 115 kg

DRUGS (38)
  1. NORVASC [Suspect]
     Indication: HYPERTENSION
     Dosage: ORAL
     Route: 048
     Dates: start: 20010723
  2. SORTIS (ATORVASTATIN) [Suspect]
     Indication: HYPERLIPIDAEMIA
     Dosage: ORAL
     Route: 048
     Dates: start: 20010725
  3. CIPROFLOXACIN HCL [Suspect]
     Indication: CHRONIC OBSTRUCTIVE AIRWAYS DISEASE EXACERBATED
     Dosage: ORAL
     Route: 048
     Dates: start: 20010720, end: 20010724
  4. FUROSEMIDE [Suspect]
     Indication: RENAL FAILURE
     Dosage: INTRAVENOUS
     Route: 042
     Dates: start: 20010720, end: 20010725
  5. INSULIN [Suspect]
     Indication: DIABETES MELLITUS
     Dosage: SUBCUTANEOUS
     Route: 058
     Dates: start: 20010720
  6. ACETYLCYSTEINE [Suspect]
     Indication: ILL-DEFINED DISORDER
     Dosage: ORAL
     Route: 048
     Dates: start: 20010720
  7. AMITRIPTYLINE HYDROCHLORIDE [Concomitant]
  8. IPRATROPIUM BROMIDE [Concomitant]
  9. THEOPHYLLINE [Concomitant]
  10. REPROTEROL HYDROCHLORIDE (REPROTEROL HYDROCHLORIDE) [Concomitant]
  11. FORMOTEROL FUMARATE (FORMOTEROL FUMARATE) [Concomitant]
  12. PREDNISOLONE SODIUM PHOSPHATE [Concomitant]
  13. PANTOPRAZOLE SODIUM (PANTOPRAZOLE SODIUM) [Concomitant]
  14. DIMETICONE, ACTIVATED (SIMETICONE) [Concomitant]
  15. ALLOPURINOL [Concomitant]
  16. NITROGLYCERIN [Concomitant]
  17. HEPARIN [Concomitant]
  18. AMITRIPTYLINE HYDROCHLORIDE [Concomitant]
  19. SALBUTAMOL SULFATE (SALBUTAMOL SULFATE) [Concomitant]
  20. TORSEMIDE [Concomitant]
  21. LACTULOSE [Concomitant]
  22. POLYSPORIN STERILE OPHTHALMIC OINTMENT (POLYMYXIN B SULFATE, BACTRACIN [Concomitant]
  23. ACETYLSALICYLIC ACID SRT [Concomitant]
  24. DIAZEPAM [Concomitant]
  25. BENAZEPRIL HYDROCHLORIDE (BENAZEPRIL HYDROCHLORIDE) [Concomitant]
  26. BISACODYL (BISACODYL) [Concomitant]
  27. ACETYLCYSTEINE [Concomitant]
  28. THEOPHYLLINE [Concomitant]
  29. BAMBUTEROL (BAMBUTEROL) [Concomitant]
  30. SALMETEROL XINAFOATE [Concomitant]
  31. BECLOMETASONE DIPROPIONATE (BECLOMETASONE DIPROPIONATE) [Concomitant]
  32. PREDNISONE [Concomitant]
  33. VERAPAMIL HCL [Concomitant]
  34. COLECALCIFEROL (COLECALCIFEROL) [Concomitant]
  35. CALCIUM (CALCIUM) [Concomitant]
  36. SODIUM CHLORIDE COMPOUND INJECTION [Concomitant]
     Route: 042
  37. POTASSIUM CHLORIDE [Concomitant]
  38. ISOPROMETHAZINE HYDROCHLORIDE [Concomitant]

REACTIONS (15)
  - CARDIAC ASTHMA [None]
  - CARDIAC FAILURE [None]
  - CARDIOVASCULAR DISORDER [None]
  - CONSTIPATION [None]
  - FLATULENCE [None]
  - HYPERLIPIDAEMIA [None]
  - HYPERTENSION [None]
  - HYPERURICAEMIA [None]
  - MUCOSAL EROSION [None]
  - PNEUMONIA [None]
  - PYREXIA [None]
  - RENAL FAILURE [None]
  - RESPIRATORY FAILURE [None]
  - SEPTIC SHOCK [None]
  - TOXIC EPIDERMAL NECROLYSIS [None]
